FAERS Safety Report 25312769 (Version 2)
Quarter: 2025Q2

REPORT INFORMATION
  Report Type: Spontaneous
  Country: JP (occurrence: JP)
  Receive Date: 20250514
  Receipt Date: 20250623
  Transmission Date: 20250717
  Serious: Yes (Other)
  Sender: AMGEN
  Company Number: JP-AMGEN-JPNSP2025091044

PATIENT

DRUGS (1)
  1. REPATHA [Suspect]
     Active Substance: EVOLOCUMAB
     Indication: Product used for unknown indication
     Route: 065

REACTIONS (1)
  - Foot operation [Unknown]
